FAERS Safety Report 12503218 (Version 1)
Quarter: 2016Q2

REPORT INFORMATION
  Report Type: Spontaneous
  Country: US (occurrence: None)
  Receive Date: 20160627
  Receipt Date: 20160627
  Transmission Date: 20160815
  Serious: Yes (Life-Threatening, Hospitalization)
  Sender: FDA-Public Use
  Company Number: None

PATIENT
  Age: 71 Year
  Sex: Male

DRUGS (18)
  1. MYFORTIC [Suspect]
     Active Substance: MYCOPHENOLATE SODIUM
     Indication: RENAL TRANSPLANT
     Route: 048
     Dates: start: 2010, end: 20160511
  2. GLYBURIDE. [Concomitant]
     Active Substance: GLYBURIDE
  3. ISOSORBIDE. [Concomitant]
     Active Substance: ISOSORBIDE
  4. PREDNISONE. [Concomitant]
     Active Substance: PREDNISONE
  5. SENSIPAR [Concomitant]
     Active Substance: CINACALCET HYDROCHLORIDE
  6. LISINOPRIL. [Concomitant]
     Active Substance: LISINOPRIL
  7. METOPROLOL. [Concomitant]
     Active Substance: METOPROLOL
  8. AMLODIPINE [Concomitant]
     Active Substance: AMLODIPINE BESYLATE
  9. PRILOSEC [Concomitant]
     Active Substance: OMEPRAZOLE MAGNESIUM
  10. FOSAMAX [Concomitant]
     Active Substance: ALENDRONATE SODIUM
  11. NEXIUM [Concomitant]
     Active Substance: ESOMEPRAZOLE MAGNESIUM
  12. PROGRAF [Concomitant]
     Active Substance: TACROLIMUS\TACROLIMUS ANHYDROUS
  13. ASPIRIN. [Concomitant]
     Active Substance: ASPIRIN
  14. LEVAQUIN [Concomitant]
     Active Substance: LEVOFLOXACIN
  15. MUCUS ER [Concomitant]
     Active Substance: GUAIFENESIN
  16. MULTIVITAMIN [Concomitant]
     Active Substance: VITAMINS
  17. PRAVASTATIN [Concomitant]
     Active Substance: PRAVASTATIN\PRAVASTATIN SODIUM
  18. ZETIA [Concomitant]
     Active Substance: EZETIMIBE

REACTIONS (1)
  - Renal failure [None]

NARRATIVE: CASE EVENT DATE: 20160511
